FAERS Safety Report 6305639-4 (Version None)
Quarter: 2009Q3

REPORT INFORMATION
  Report Type: 
  Country: None (occurrence: None)
  Receive Date: 20090806
  Receipt Date: 20090723
  Transmission Date: 20100115
  Serious: Yes (Disabling)
  Sender: FDA-Public Use
  Company Number: 002309

PATIENT
  Age: 83 Year
  Sex: Male

DRUGS (1)
  1. MACUGEN [Suspect]
     Dosage: 0.3 MG, INTRA-VITREAL

REACTIONS (1)
  - RETINAL HAEMORRHAGE [None]
